FAERS Safety Report 23625769 (Version 1)
Quarter: 2024Q1

REPORT INFORMATION
  Report Type: Other
  Country: DE (occurrence: DE)
  Receive Date: 20240313
  Receipt Date: 20240313
  Transmission Date: 20240410
  Serious: Yes (Life-Threatening, Other)
  Sender: FDA-Public Use
  Company Number: None

PATIENT
  Age: 82 Year
  Sex: Female

DRUGS (10)
  1. CLOZAPINE [Suspect]
     Active Substance: CLOZAPINE
     Indication: Schizophrenia
     Dosage: 200 MG TO 250 MG PER DAY
  2. CLOZAPINE [Suspect]
     Active Substance: CLOZAPINE
  3. CLOZAPINE [Suspect]
     Active Substance: CLOZAPINE
     Dosage: DOSE DECREASED FROM 200 TO 50 MG PER DAY
  4. CLOZAPINE [Suspect]
     Active Substance: CLOZAPINE
  5. ARIPIPRAZOLE [Suspect]
     Active Substance: ARIPIPRAZOLE
     Indication: Schizophrenia
  6. RISPERIDONE [Suspect]
     Active Substance: RISPERIDONE
     Indication: Schizophrenia
  7. BISOPROLOL [Concomitant]
     Active Substance: BISOPROLOL\BISOPROLOL FUMARATE
     Indication: Hypertension
  8. APIXABAN [Concomitant]
     Active Substance: APIXABAN
     Indication: Atrial fibrillation
  9. TORSEMIDE [Concomitant]
     Active Substance: TORSEMIDE
     Indication: Hypertension
  10. INSULIN NOS [Concomitant]
     Active Substance: INSULIN NOS
     Indication: Type 2 diabetes mellitus

REACTIONS (6)
  - Pericardial effusion [Recovered/Resolved]
  - Autoimmune disorder [Recovered/Resolved]
  - Cardiac tamponade [Recovered/Resolved]
  - Polyserositis [Recovered/Resolved]
  - Pleural effusion [Recovered/Resolved]
  - Parkinsonism [Recovered/Resolved]
